FAERS Safety Report 8558977-9 (Version None)
Quarter: 2012Q3

REPORT INFORMATION
  Report Type: 
  Country: None (occurrence: None)
  Receive Date: 20120802
  Receipt Date: 20120730
  Transmission Date: 20120928
  Serious: Yes (Death, Hospitalization)
  Sender: FDA-Public Use
  Company Number: JP-BRISTOL-MYERS SQUIBB COMPANY-16138547

PATIENT
  Age: 83 Year
  Sex: Female

DRUGS (8)
  1. METHOTREXATE [Suspect]
  2. FOLIC ACID [Concomitant]
     Indication: PROPHYLAXIS
  3. LOXONIN [Concomitant]
     Indication: RHEUMATOID ARTHRITIS
  4. MUCOSTA [Concomitant]
     Indication: PROPHYLAXIS AGAINST GASTROINTESTINAL ULCER
  5. ISONIAZID [Concomitant]
     Indication: TUBERCULOSIS
  6. VITAMIN B12 [Concomitant]
     Indication: PROPHYLAXIS
  7. ORENCIA [Suspect]
     Indication: RHEUMATOID ARTHRITIS
     Dosage: THERAPY ON 23MAY11,06JUN11,04JUL11,01AUG11,29AUG11
     Route: 041
     Dates: start: 20110509
  8. PYDOXAL [Concomitant]
     Indication: PROPHYLAXIS

REACTIONS (2)
  - INTERSTITIAL LUNG DISEASE [None]
  - RESPIRATORY FAILURE [None]
